FAERS Safety Report 5611702-3 (Version None)
Quarter: 2008Q1

REPORT INFORMATION
  Report Type: 
  Country: None (occurrence: None)
  Receive Date: 20080201
  Receipt Date: 20080121
  Transmission Date: 20080703
  Serious: Yes (Hospitalization)
  Sender: FDA-Public Use
  Company Number: ES-MERCK-0801ESP00017

PATIENT
  Age: 55 Day
  Sex: Female

DRUGS (5)
  1. CANCIDAS [Suspect]
     Indication: CANDIDA SEPSIS
     Route: 042
     Dates: start: 20070528, end: 20070612
  2. FLUCONAZOLE [Concomitant]
     Indication: CANDIDA SEPSIS
     Route: 042
     Dates: start: 20070526, end: 20070528
  3. VANCOMYCIN HYDROCHLORIDE [Concomitant]
     Indication: STAPHYLOCOCCAL INFECTION
     Route: 042
     Dates: start: 20070515, end: 20070529
  4. AMPHOTERICIN B [Concomitant]
     Indication: CANDIDA SEPSIS
     Route: 042
     Dates: start: 20070516
  5. MEROPENEM [Concomitant]
     Indication: SERRATIA INFECTION
     Route: 042
     Dates: start: 20070518, end: 20070529

REACTIONS (1)
  - HEPATITIS CHOLESTATIC [None]
